FAERS Safety Report 26010156 (Version 2)
Quarter: 2025Q4

REPORT INFORMATION
  Report Type: Spontaneous
  Country: EU (occurrence: EU)
  Receive Date: 20251107
  Receipt Date: 20251124
  Transmission Date: 20260117
  Serious: Yes (Other)
  Sender: CELLTRION
  Company Number: EU-SANDOZ-SDZ2025SK079208

PATIENT

DRUGS (2)
  1. ADALIMUMAB [Suspect]
     Active Substance: ADALIMUMAB
     Indication: Crohn^s disease
     Dosage: UNK
     Route: 065
     Dates: start: 202209, end: 202505
  2. ADALIMUMAB [Suspect]
     Active Substance: ADALIMUMAB
     Dosage: UNK
     Route: 065
     Dates: start: 202209, end: 202505

REACTIONS (5)
  - Crohn^s disease [Recovering/Resolving]
  - Osteoarthritis [Unknown]
  - Enthesopathy [Unknown]
  - Arthralgia [Unknown]
  - Paradoxical psoriasis [Unknown]

NARRATIVE: CASE EVENT DATE: 20220101
